FAERS Safety Report 9413658 (Version 1)
Quarter: 2013Q3

REPORT INFORMATION
  Report Type: Spontaneous
  Country: BA (occurrence: BA)
  Receive Date: 20130722
  Receipt Date: 20130722
  Transmission Date: 20140515
  Serious: Yes (Life-Threatening, Hospitalization, Other)
  Sender: FDA-Public Use
  Company Number: BA-RB-056153-13

PATIENT
  Age: 25 Year
  Sex: Female
  Weight: 56 kg

DRUGS (4)
  1. SUBOXONE UNSPECIFIED [Suspect]
     Indication: DRUG WITHDRAWAL MAINTENANCE THERAPY
     Route: 060
     Dates: start: 20110427
  2. KARBAMAZEPIN [Suspect]
     Indication: AGGRESSION
     Route: 048
     Dates: start: 20121102
  3. HEPALIP FORTE [Concomitant]
     Indication: HEPATITIS C
     Route: 048
     Dates: start: 20130427
  4. NICOTINE [Concomitant]
     Indication: PRODUCT USED FOR UNKNOWN INDICATION
     Dosage: DOSING DETAILS UNKNOWN
     Route: 055

REACTIONS (4)
  - Exposure during pregnancy [Recovered/Resolved]
  - Vaginal haemorrhage [Recovered/Resolved]
  - Premature delivery [Recovered/Resolved]
  - Drug interaction [Not Recovered/Not Resolved]
